FAERS Safety Report 8837620 (Version 2)
Quarter: 2012Q4

REPORT INFORMATION
  Report Type: 
  Country: GB (occurrence: GB)
  Receive Date: 20121012
  Receipt Date: 20121108
  Transmission Date: 20130627
  Serious: Yes (Other)
  Sender: FDA-Public Use
  Company Number: GB-JNJFOC-20121005044

PATIENT
  Sex: Female

DRUGS (4)
  1. STELARA [Suspect]
     Indication: PSORIASIS
     Dosage: third injection
     Route: 058
     Dates: start: 201204
  2. STELARA [Suspect]
     Indication: PSORIASIS
     Dosage: second injection
     Route: 058
     Dates: start: 201201
  3. STELARA [Suspect]
     Indication: PSORIASIS
     Dosage: first injection
     Route: 058
     Dates: start: 201112
  4. STELARA [Suspect]
     Indication: PSORIASIS
     Dosage: fourth injection
     Route: 058
     Dates: start: 201207

REACTIONS (4)
  - Rash pruritic [Unknown]
  - Eosinophilia [Unknown]
  - Thrombocytosis [Unknown]
  - Drug eruption [Unknown]
